FAERS Safety Report 7806502-X (Version None)
Quarter: 2011Q4

REPORT INFORMATION
  Report Type: 
  Country: None (occurrence: None)
  Receive Date: 20111011
  Receipt Date: 20111003
  Transmission Date: 20120403
  Serious: No
  Sender: FDA-Public Use
  Company Number: US-B.I. PHARMACEUTICALS,INC./RIDGEFIELD-2011-BP-21293BP

PATIENT
  Age: 71 Year
  Sex: Female

DRUGS (5)
  1. QUINAPRIL [Concomitant]
     Indication: HYPERTENSION
     Dosage: 5 MG
     Route: 048
  2. PRADAXA [Suspect]
     Indication: ATRIAL FIBRILLATION
     Dosage: 300 MG
     Route: 048
     Dates: start: 20110801
  3. WARFARIN SODIUM [Concomitant]
     Dosage: 5 MG
  4. NORVASC [Concomitant]
     Indication: HYPERTENSION
     Route: 048
  5. HYDROCODONE BITARTRATE [Concomitant]
     Indication: HEADACHE
     Dosage: 5 MG
     Route: 048

REACTIONS (14)
  - CHOKING SENSATION [None]
  - VOMITING [None]
  - DEFAECATION URGENCY [None]
  - NAUSEA [None]
  - ASTHENIA [None]
  - ERUCTATION [None]
  - ABDOMINAL PAIN [None]
  - FLATULENCE [None]
  - GASTROINTESTINAL DISORDER [None]
  - DYSPEPSIA [None]
  - HEADACHE [None]
  - DIARRHOEA [None]
  - DIZZINESS [None]
  - DYSPNOEA [None]
